FAERS Safety Report 21167595 (Version 1)
Quarter: 2022Q3

REPORT INFORMATION
  Report Type: Spontaneous
  Country: US (occurrence: None)
  Receive Date: 20220803
  Receipt Date: 20220803
  Transmission Date: 20221026
  Serious: Yes (Hospitalization)
  Sender: FDA-Public Use
  Company Number: None

PATIENT
  Sex: Female

DRUGS (5)
  1. FLUOROURACIL [Suspect]
     Active Substance: FLUOROURACIL
     Indication: Actinic keratosis
     Dosage: FREQUENCY : AT BEDTIME;?APPLIED TO A SURFACE, USUALLY THE SKIN?
     Route: 058
     Dates: start: 20220311, end: 20220401
  2. ATORVASTATIN [Concomitant]
     Active Substance: ATORVASTATIN
  3. GABAPENTIN [Concomitant]
     Active Substance: GABAPENTIN
  4. Motri PRN [Concomitant]
  5. VITAMIN D [Concomitant]
     Active Substance: VITAMIN D NOS

REACTIONS (5)
  - Burning sensation [None]
  - Skin burning sensation [None]
  - Application site inflammation [None]
  - Application site exfoliation [None]
  - Application site nerve damage [None]
